FAERS Safety Report 13396231 (Version 1)
Quarter: 2017Q2

REPORT INFORMATION
  Report Type: Spontaneous
  Country: US (occurrence: US)
  Receive Date: 20170403
  Receipt Date: 20170403
  Transmission Date: 20170830
  Serious: No
  Sender: FDA-Public Use
  Company Number: US-TEVA-746351USA

PATIENT
  Sex: Female

DRUGS (1)
  1. ARMODAFINIL. [Suspect]
     Active Substance: ARMODAFINIL
     Indication: POOR QUALITY SLEEP
     Dates: start: 201606, end: 201702

REACTIONS (8)
  - Abdominal distension [Unknown]
  - Disturbance in attention [Unknown]
  - Lethargy [Unknown]
  - Muscle spasms [Unknown]
  - Drug ineffective [Unknown]
  - Dysphagia [Unknown]
  - Abdominal pain upper [Unknown]
  - Headache [Unknown]

NARRATIVE: CASE EVENT DATE: 201606
